FAERS Safety Report 22651077 (Version 1)
Quarter: 2023Q2

REPORT INFORMATION
  Report Type: Spontaneous
  Country: GR (occurrence: GR)
  Receive Date: 20230628
  Receipt Date: 20230628
  Transmission Date: 20230722
  Serious: Yes (Hospitalization)
  Sender: FDA-Public Use
  Company Number: GR-ELI_LILLY_AND_COMPANY-GR202306013037

PATIENT
  Age: 79 Year
  Sex: Male

DRUGS (2)
  1. TRULICITY [Suspect]
     Active Substance: DULAGLUTIDE
     Indication: Diabetes mellitus
     Dosage: 1.5 MG, WEEKLY (1/W)
     Route: 058
     Dates: start: 202012, end: 20230402
  2. GLUCOPHAGE [Concomitant]
     Active Substance: METFORMIN HYDROCHLORIDE
     Indication: Diabetes mellitus
     Dosage: 1 DOSAGE FORM, DAILY

REACTIONS (1)
  - Arterial disorder [Unknown]

NARRATIVE: CASE EVENT DATE: 20230101
